FAERS Safety Report 7032240-X (Version None)
Quarter: 2010Q4

REPORT INFORMATION
  Report Type: 
  Country: None (occurrence: None)
  Receive Date: 20101007
  Receipt Date: 20100330
  Transmission Date: 20110411
  Serious: Yes (Life-Threatening, Hospitalization)
  Sender: FDA-Public Use
  Company Number: TW-BRISTOL-MYERS SQUIBB COMPANY-15049836

PATIENT
  Age: 71 Year
  Sex: Male
  Weight: 68 kg

DRUGS (10)
  1. CETUXIMAB [Suspect]
     Indication: NON-SMALL CELL LUNG CANCER
     Dosage: FORMULATION:5MG/ML
     Route: 042
     Dates: start: 20100108, end: 20100222
  2. CISPLATIN [Suspect]
     Indication: NON-SMALL CELL LUNG CANCER
     Dosage: ON DAY 1 OF 21 DAY CYCLE.
     Route: 042
     Dates: start: 20100108, end: 20100222
  3. DOCETAXEL [Suspect]
     Indication: NON-SMALL CELL LUNG CANCER
     Dosage: ON DAY 1 OF 21 DAY CYCLE
     Route: 042
     Dates: start: 20100108, end: 20100222
  4. VITAMIN B COMPLEX CAP [Concomitant]
     Indication: PROPHYLAXIS
     Dosage: 1 DF =3 TABS
     Route: 048
     Dates: start: 20100205, end: 20100209
  5. NAVOBAN [Concomitant]
     Indication: PROPHYLAXIS
     Route: 048
     Dates: start: 20100223, end: 20100225
  6. DEXAMETHASONE [Concomitant]
     Indication: PROPHYLAXIS
     Route: 048
     Dates: start: 20100222, end: 20100225
  7. TAKEPRON [Concomitant]
     Indication: ANAEMIA
     Route: 048
     Dates: start: 20100205
  8. DEXALTIN [Concomitant]
     Indication: ANAEMIA
     Route: 048
     Dates: start: 20100209, end: 20100308
  9. MAGNESIUM OXIDE [Concomitant]
     Indication: ANAEMIA
     Route: 048
     Dates: start: 20100209, end: 20100308
  10. FARLUTAL [Concomitant]
     Indication: ANAEMIA
     Dosage: 12FEB-22FEB10;1000 MG (10 D) 22FEB-1MAR10:500MG(7 D)
     Route: 048
     Dates: start: 20100212, end: 20100301

REACTIONS (1)
  - ANAEMIA [None]
